FAERS Safety Report 23668461 (Version 1)
Quarter: 2024Q1

REPORT INFORMATION
  Report Type: Spontaneous
  Country: CN (occurrence: CN)
  Receive Date: 20240325
  Receipt Date: 20240325
  Transmission Date: 20240410
  Serious: Yes (Other)
  Sender: FDA-Public Use
  Company Number: None

PATIENT
  Age: 40 Year
  Sex: Female
  Weight: 50 kg

DRUGS (4)
  1. CYCLOPHOSPHAMIDE [Suspect]
     Active Substance: CYCLOPHOSPHAMIDE
     Indication: Breast cancer female
     Dosage: 0.9 G, QD, DILUTED WITH 100 ML OF 0.9% SODIUM CHLORIDE, PROTECTING FROM LIGHT, 50-60 DROPS/MIN, AT 9
     Route: 041
     Dates: start: 20240109, end: 20240109
  2. SODIUM CHLORIDE [Suspect]
     Active Substance: SODIUM CHLORIDE
     Indication: Medication dilution
     Dosage: (0.9%) 100 ML, QD, USED TO DILUTE 0.9 G CYCLOPHOSPHAMIDE, PROTECTING FROM LIGHT, 50-60 DROPS/MIN, AT
     Route: 041
     Dates: start: 20240109, end: 20240109
  3. DEXTROSE [Suspect]
     Active Substance: DEXTROSE\DEXTROSE MONOHYDRATE
     Indication: Medication dilution
     Dosage: (5%) 100 ML, QD, USED TO DILUTE 130 MG EPIRUBICIN HYDROCHLORIDE, PROTECTING FROM LIGHT, 60 DROPS/MIN
     Route: 041
     Dates: start: 20240109, end: 20240109
  4. EPIRUBICIN HYDROCHLORIDE [Suspect]
     Active Substance: EPIRUBICIN HYDROCHLORIDE
     Indication: Breast cancer female
     Dosage: 130 MG, QD, DILUTED WITH 100 ML OF 5% GLUCOSE, PROTECTING FROM LIGHT, 60 DROPS/MIN, AT 9:50 HR
     Route: 041
     Dates: start: 20240109, end: 20240109

REACTIONS (2)
  - Myelosuppression [Recovering/Resolving]
  - White blood cell count decreased [Recovering/Resolving]

NARRATIVE: CASE EVENT DATE: 20240112
